FAERS Safety Report 18611802 (Version 2)
Quarter: 2020Q4

REPORT INFORMATION
  Report Type: Spontaneous
  Country: US (occurrence: US)
  Receive Date: 20201214
  Receipt Date: 20201216
  Transmission Date: 20210114
  Serious: No
  Sender: FDA-Public Use
  Company Number: US-PFIZER INC-2019458964

PATIENT
  Age: 64 Year

DRUGS (2)
  1. CHANTIX [Suspect]
     Active Substance: VARENICLINE TARTRATE
     Dosage: STARTING PACKS 0.5MG, QUANTITY FOR 90 DAYS: 53
  2. CHANTIX [Suspect]
     Active Substance: VARENICLINE TARTRATE
     Dosage: STRENGTH: 1 MG, QUANTITY FOR 90 DAYS: 180 PILLS

REACTIONS (2)
  - Off label use [Unknown]
  - Product use issue [Unknown]
